FAERS Safety Report 7671124-0 (Version None)
Quarter: 2011Q3

REPORT INFORMATION
  Report Type: 
  Country: None (occurrence: None)
  Receive Date: 20110809
  Receipt Date: 20110803
  Transmission Date: 20111222
  Serious: Yes (Hospitalization)
  Sender: FDA-Public Use
  Company Number: US-SANOFI-AVENTIS-2010SA048964

PATIENT
  Age: 74 Year
  Sex: Female

DRUGS (6)
  1. SOLOSTAR [Suspect]
     Dates: start: 20090101
  2. LANTUS [Suspect]
     Dosage: DOSE:28 UNIT(S)
     Route: 058
     Dates: start: 20090101
  3. SOLOSTAR [Suspect]
     Dates: start: 20090101
  4. LANTUS [Suspect]
     Dosage: DOSE:28 UNIT(S)
     Route: 058
     Dates: start: 20090101
  5. LANTUS [Suspect]
     Dosage: DOSE:28 UNIT(S)
     Route: 058
     Dates: start: 20090101
  6. SOLOSTAR [Suspect]
     Dates: start: 20090101

REACTIONS (2)
  - FALL [None]
  - FOOT FRACTURE [None]
